FAERS Safety Report 21458485 (Version 2)
Quarter: 2022Q4

REPORT INFORMATION
  Report Type: Spontaneous
  Country: JP (occurrence: JP)
  Receive Date: 20221014
  Receipt Date: 20221020
  Transmission Date: 20230112
  Serious: Yes (Death, Hospitalization)
  Sender: FDA-Public Use
  Company Number: JP-PFIZER INC-PV202200081461

PATIENT
  Age: 80 Year
  Sex: Male

DRUGS (1)
  1. VYNDAQEL [Suspect]
     Active Substance: TAFAMIDIS MEGLUMINE
     Indication: Hereditary neuropathic amyloidosis
     Dosage: 20 MG, DAILY
     Route: 048
     Dates: start: 201408, end: 202208

REACTIONS (4)
  - Sepsis [Fatal]
  - Pyrexia [Unknown]
  - Chromaturia [Unknown]
  - Nausea [Unknown]

NARRATIVE: CASE EVENT DATE: 20220801
